FAERS Safety Report 24304898 (Version 2)
Quarter: 2025Q1

REPORT INFORMATION
  Report Type: Spontaneous
  Country: JP (occurrence: JP)
  Receive Date: 20240911
  Receipt Date: 20250203
  Transmission Date: 20250409
  Serious: Yes (Other)
  Sender: TAKEDA
  Company Number: JP-TAKEDA-2024TJP013320

PATIENT

DRUGS (2)
  1. NINLARO [Suspect]
     Active Substance: IXAZOMIB CITRATE
     Indication: Plasma cell myeloma
     Dosage: UNK UNK, 1/WEEK
  2. NINLARO [Suspect]
     Active Substance: IXAZOMIB CITRATE

REACTIONS (2)
  - Plasma cell myeloma [Unknown]
  - Renal impairment [Recovering/Resolving]

NARRATIVE: CASE EVENT DATE: 20240801
